FAERS Safety Report 5636006-4 (Version None)
Quarter: 2008Q1

REPORT INFORMATION
  Report Type: 
  Country: None (occurrence: None)
  Receive Date: 20080225
  Receipt Date: 20080218
  Transmission Date: 20080703
  Serious: Yes (Other)
  Sender: FDA-Public Use
  Company Number: FR-RB-000030-08

PATIENT
  Age: 46 Year
  Sex: Female

DRUGS (2)
  1. SUBUTEX [Suspect]
     Indication: DRUG USE FOR UNKNOWN INDICATION
     Dosage: PRESCRIBED 4MG QD BUT TOOK 8MG QD
     Route: 065
  2. BUPRENORPHINE HCL [Suspect]
     Indication: DRUG USE FOR UNKNOWN INDICATION
     Dosage: PRESCRIBED 4MG QD BUT TOOK 8MG QD
     Route: 065

REACTIONS (8)
  - ANXIETY [None]
  - DEPRESSION [None]
  - INCORRECT DOSE ADMINISTERED [None]
  - INTENTIONAL DRUG MISUSE [None]
  - RESPIRATORY DISORDER [None]
  - SUICIDAL IDEATION [None]
  - TENSION [None]
  - WITHDRAWAL SYNDROME [None]
